FAERS Safety Report 9098519 (Version 1)
Quarter: 2013Q1

REPORT INFORMATION
  Report Type: Spontaneous
  Country: FR (occurrence: FR)
  Receive Date: 20130213
  Receipt Date: 20130213
  Transmission Date: 20140127
  Serious: Yes (Other)
  Sender: FDA-Public Use
  Company Number: FR-ASTRAZENECA-2013SE08445

PATIENT
  Sex: Female

DRUGS (2)
  1. SYMBICORT TBH [Suspect]
     Indication: ASTHMA
     Dosage: 320/9 UG PER DOSE, ONE INHALATION IN THE MORNING AND ONE INHALATION IN THE EVENING
     Route: 055
     Dates: start: 201201
  2. SYMBICORT TBH [Suspect]
     Indication: ASTHMA
     Dosage: 160/4.5 UG PER DOSE, ONE INHALATION IN THE MORNING AND ONE INHALATION IN THE EVENING
     Route: 055
     Dates: end: 201301

REACTIONS (5)
  - Asthma [Not Recovered/Not Resolved]
  - Angioedema [Recovered/Resolved]
  - Nervousness [Recovered/Resolved]
  - Agitation [Recovered/Resolved]
  - Drug dose omission [Unknown]
